FAERS Safety Report 12485008 (Version 2)
Quarter: 2016Q4

REPORT INFORMATION
  Report Type: Spontaneous
  Country: FR (occurrence: FR)
  Receive Date: 20160621
  Receipt Date: 20161018
  Transmission Date: 20170207
  Serious: Yes (Hospitalization)
  Sender: FDA-Public Use
  Company Number: FR-GLAXOSMITHKLINE-FR2016GSK086132

PATIENT
  Age: 39 Year
  Sex: Female

DRUGS (5)
  1. SERETIDE [Suspect]
     Active Substance: FLUTICASONE PROPIONATE\SALMETEROL XINAFOATE
     Indication: ASTHMA
     Dosage: 2 PUFF(S), 1D
     Route: 055
     Dates: start: 20090401
  2. INEXIUM [Concomitant]
     Active Substance: ESOMEPRAZOLE
     Indication: PRODUCT USED FOR UNKNOWN INDICATION
     Dosage: UNK
  3. XOLAIR [Suspect]
     Active Substance: OMALIZUMAB
     Indication: ASTHMA
     Dosage: 300 MG, Z
     Route: 058
     Dates: start: 2011
  4. KESTIN [Suspect]
     Active Substance: EBASTINE
     Indication: ASTHMA
     Dosage: UNK
     Dates: start: 2013
  5. VENTOLINE [Concomitant]
     Active Substance: ALBUTEROL
     Indication: PRODUCT USED FOR UNKNOWN INDICATION
     Dosage: UNK

REACTIONS (3)
  - Ligament sprain [Recovered/Resolved]
  - Arthralgia [Recovered/Resolved]
  - Bone fissure [Recovered/Resolved]

NARRATIVE: CASE EVENT DATE: 201311
